FAERS Safety Report 5813058-X (Version None)
Quarter: 2008Q3

REPORT INFORMATION
  Report Type: 
  Country: None (occurrence: None)
  Receive Date: 20080717
  Receipt Date: 20071129
  Transmission Date: 20090109
  Serious: No
  Sender: FDA-Public Use
  Company Number: A0696480A

PATIENT
  Age: 47 Year
  Sex: Female

DRUGS (1)
  1. NICORETTE (MINT) [Suspect]
     Dates: start: 20071120, end: 20071122

REACTIONS (2)
  - MALAISE [None]
  - VOMITING [None]
